FAERS Safety Report 5147707-9 (Version None)
Quarter: 2006Q4

REPORT INFORMATION
  Report Type: 
  Country: None (occurrence: None)
  Receive Date: 20061110
  Receipt Date: 20061030
  Transmission Date: 20070319
  Serious: Yes (Hospitalization)
  Sender: FDA-Public Use
  Company Number: HQWYE850230OCT06

PATIENT
  Sex: Female

DRUGS (2)
  1. ENBREL [Suspect]
     Indication: RHEUMATOID ARTHRITIS
     Route: 058
     Dates: start: 20051129
  2. METHOTREXATE [Suspect]
     Route: 048
     Dates: start: 20051129

REACTIONS (2)
  - LUNG DISORDER [None]
  - PERICARDITIS [None]
